FAERS Safety Report 18403439 (Version 1)
Quarter: 2020Q4

REPORT INFORMATION
  Report Type: Spontaneous
  Country: FR (occurrence: FR)
  Receive Date: 20201020
  Receipt Date: 20201020
  Transmission Date: 20210114
  Serious: Yes (Hospitalization, Other)
  Sender: FDA-Public Use
  Company Number: FR-ASTELLAS-2020US036376

PATIENT
  Age: 40 Year
  Sex: Male

DRUGS (2)
  1. PROGRAF [Suspect]
     Active Substance: TACROLIMUS
     Indication: PANCREAS ISLET CELL TRANSPLANT
     Dosage: UNK UNK, TWICE DAILY (9-13 ?G/L FOR THE FIRST 3 MONTHS, THEN 6-9 ?G/L THEREAFTER)
     Route: 065
  2. CELLCEPT [Concomitant]
     Active Substance: MYCOPHENOLATE MOFETIL\MYCOPHENOLATE MOFETIL HYDROCHLORIDE
     Indication: PANCREAS ISLET CELL TRANSPLANT
     Route: 065

REACTIONS (4)
  - Endothelial dysfunction [Unknown]
  - Toxicity to various agents [Unknown]
  - Atypical haemolytic uraemic syndrome [Not Recovered/Not Resolved]
  - Immunosuppressant drug level increased [Unknown]
